FAERS Safety Report 4954801-1 (Version None)
Quarter: 2006Q1

REPORT INFORMATION
  Report Type: 
  Country: None (occurrence: None)
  Receive Date: 20060327
  Receipt Date: 20050427
  Transmission Date: 20060701
  Serious: Yes (Death)
  Sender: FDA-Public Use
  Company Number: US-MERCK-0504USA04743

PATIENT
  Age: 51 Year
  Sex: Male
  Weight: 82 kg

DRUGS (5)
  1. TENORMIN [Concomitant]
     Route: 048
  2. TENORMIN [Concomitant]
     Route: 065
     Dates: start: 19930101, end: 20040422
  3. VIOXX [Suspect]
     Indication: ARTHRALGIA
     Route: 048
     Dates: start: 20030410, end: 20040422
  4. XANAX [Concomitant]
     Route: 065
  5. RESTORIL [Concomitant]
     Route: 065

REACTIONS (5)
  - BLOOD CHOLESTEROL INCREASED [None]
  - DRUG ADMINISTRATION ERROR [None]
  - HIGH DENSITY LIPOPROTEIN DECREASED [None]
  - LOW DENSITY LIPOPROTEIN INCREASED [None]
  - MYOCARDIAL INFARCTION [None]
